FAERS Safety Report 10367802 (Version 1)
Quarter: 2014Q3

REPORT INFORMATION
  Report Type: Spontaneous
  Country: US (occurrence: None)
  Receive Date: 20140806
  Receipt Date: 20140806
  Transmission Date: 20150326
  Serious: No
  Sender: FDA-Public Use
  Company Number: None

PATIENT
  Age: 57 Year
  Sex: Female
  Weight: 95.26 kg

DRUGS (1)
  1. EXCEDRIN EXTRA STRENGTH [Suspect]
     Active Substance: ACETAMINOPHEN\ASPIRIN\CAFFEINE
     Indication: BACK PAIN
     Dosage: 1 TAB TAKEN BY MOUTH
     Route: 048
     Dates: start: 20140804, end: 20140805

REACTIONS (3)
  - Nausea [None]
  - Eye swelling [None]
  - Pulmonary congestion [None]

NARRATIVE: CASE EVENT DATE: 20140805
